FAERS Safety Report 4342580-0 (Version None)
Quarter: 2004Q1

REPORT INFORMATION
  Report Type: 
  Country: None (occurrence: None)
  Receive Date: 20040213
  Receipt Date: 20031202
  Transmission Date: 20041129
  Serious: Yes (Other)
  Sender: FDA-Public Use
  Company Number: 353370

PATIENT
  Age: 47 Year
  Sex: Female
  Weight: 75.8 kg

DRUGS (2)
  1. PEGASYS [Suspect]
     Dates: start: 20031113
  2. COPEGUS [Suspect]
     Dosage: ORAL
     Route: 048
     Dates: start: 20031113

REACTIONS (2)
  - DIZZINESS [None]
  - HYPERTENSION [None]
